FAERS Safety Report 12343123 (Version 3)
Quarter: 2016Q2

REPORT INFORMATION
  Report Type: Report from Study
  Country: CA (occurrence: CA)
  Receive Date: 20160506
  Receipt Date: 20160523
  Transmission Date: 20160815
  Serious: Yes (Other)
  Sender: FDA-Public Use
  Company Number: CA-SA-2015SA099616

PATIENT
  Age: 50 Year
  Sex: Female
  Weight: 65 kg

DRUGS (16)
  1. BENADRYL [Concomitant]
     Active Substance: DIPHENHYDRAMINE HYDROCHLORIDE
     Route: 048
     Dates: start: 20150706
  2. REACTINE [Concomitant]
     Active Substance: CETIRIZINE HYDROCHLORIDE
     Route: 048
     Dates: start: 20150705
  3. RANITIDINE. [Concomitant]
     Active Substance: RANITIDINE
     Route: 048
     Dates: start: 20150705
  4. GRAVOL [Concomitant]
     Active Substance: DIMENHYDRINATE
     Dosage: Q4H PRN
     Route: 048
     Dates: start: 20150706
  5. AMANTADINE [Concomitant]
     Active Substance: AMANTADINE
     Route: 048
  6. NALTREXONE [Concomitant]
     Active Substance: NALTREXONE
     Route: 048
  7. ALFACALCIDOL [Concomitant]
     Active Substance: ALFACALCIDOL
     Route: 048
  8. YAZ [Concomitant]
     Active Substance: DROSPIRENONE\ETHINYL ESTRADIOL
     Route: 048
  9. METHYLPREDNISOLONE. [Concomitant]
     Active Substance: METHYLPREDNISOLONE
     Route: 042
     Dates: start: 20150706, end: 20150708
  10. ZANTAC [Concomitant]
     Active Substance: RANITIDINE HYDROCHLORIDE
     Route: 048
     Dates: start: 20150705
  11. ACYCLOVIR. [Concomitant]
     Active Substance: ACYCLOVIR
     Route: 048
     Dates: start: 20150706
  12. TYLENOL [Concomitant]
     Active Substance: ACETAMINOPHEN
     Dosage: Q6H PRN
     Route: 048
     Dates: start: 20150706
  13. ESTRIOL [Concomitant]
     Active Substance: ESTRIOL
     Route: 048
  14. FAMPYRA [Concomitant]
     Active Substance: DALFAMPRIDINE
     Route: 048
  15. LEMTRADA [Suspect]
     Active Substance: ALEMTUZUMAB
     Indication: MULTIPLE SCLEROSIS
     Route: 041
     Dates: start: 20150706, end: 20150713
  16. BACLOFEN. [Concomitant]
     Active Substance: BACLOFEN
     Route: 048

REACTIONS (28)
  - White blood cells urine positive [Not Recovered/Not Resolved]
  - Insomnia [Not Recovered/Not Resolved]
  - Headache [Recovered/Resolved]
  - Leukocyturia [Unknown]
  - Rash [Not Recovered/Not Resolved]
  - Polychromic red blood cells present [Unknown]
  - Red blood cell poikilocytes present [Unknown]
  - Mean cell haemoglobin concentration decreased [Recovered/Resolved]
  - Visual impairment [Recovered/Resolved]
  - Balance disorder [Recovered/Resolved]
  - Mean cell volume decreased [Not Recovered/Not Resolved]
  - Gamma-glutamyltransferase increased [Unknown]
  - Haematocrit decreased [Not Recovered/Not Resolved]
  - Urine abnormality [Unknown]
  - Nausea [Recovered/Resolved]
  - Red blood cell count increased [Not Recovered/Not Resolved]
  - Flushing [Recovered/Resolved]
  - Microcytic anaemia [Unknown]
  - Mean cell haemoglobin decreased [Not Recovered/Not Resolved]
  - Pyrexia [Recovered/Resolved]
  - Seizure [Recovered/Resolved]
  - Crystal urine present [Unknown]
  - Red cell distribution width increased [Unknown]
  - Alanine aminotransferase increased [Unknown]
  - Fatigue [Recovered/Resolved]
  - Red blood cell microcytes present [Unknown]
  - Red blood cell punctate basophilia present [Unknown]
  - Haemoglobin decreased [Not Recovered/Not Resolved]

NARRATIVE: CASE EVENT DATE: 20150706
